FAERS Safety Report 8988961 (Version 1)
Quarter: 2012Q4

REPORT INFORMATION
  Report Type: 
  Country: FR (occurrence: FR)
  Receive Date: 20121227
  Receipt Date: 20121227
  Transmission Date: 20130627
  Serious: Yes (Disabling)
  Sender: FDA-Public Use
  Company Number: FR-PFIZER INC-2012324642

PATIENT
  Age: 40 Year
  Sex: Female

DRUGS (3)
  1. VFEND [Suspect]
     Dosage: 200 mg, 2x/day
     Route: 048
     Dates: start: 20060622, end: 20070903
  2. PROGRAF [Suspect]
     Dosage: 1 mg, 2x/day
     Route: 048
  3. MYFORTIC [Suspect]
     Dosage: 180 mg, 2x/day
     Route: 048
     Dates: start: 20111031, end: 20120423

REACTIONS (3)
  - Lip squamous cell carcinoma [Recovered/Resolved with Sequelae]
  - Anal cancer [Not Recovered/Not Resolved]
  - Skin cancer [Recovered/Resolved with Sequelae]
